FAERS Safety Report 20823817 (Version 3)
Quarter: 2022Q3

REPORT INFORMATION
  Report Type: Spontaneous
  Country: DE (occurrence: DE)
  Receive Date: 20220513
  Receipt Date: 20220714
  Transmission Date: 20221026
  Serious: Yes (Hospitalization, Other)
  Sender: FDA-Public Use
  Company Number: DE-BIOGEN-2022BI01121699

PATIENT
  Age: 32 Year
  Sex: Male

DRUGS (3)
  1. TYSABRI [Suspect]
     Active Substance: NATALIZUMAB
     Indication: Multiple sclerosis
     Route: 050
     Dates: start: 201304
  2. TAMSULOSIN [Concomitant]
     Active Substance: TAMSULOSIN
     Indication: Product used for unknown indication
     Route: 050
  3. ADALIMUMAB [Concomitant]
     Active Substance: ADALIMUMAB
     Indication: Product used for unknown indication
     Route: 050
     Dates: start: 201211, end: 201303

REACTIONS (5)
  - Cystitis [Recovered/Resolved with Sequelae]
  - Urinary retention [Recovered/Resolved]
  - Intestinal fistula [Unknown]
  - Epididymitis [Unknown]
  - Orchitis [Unknown]

NARRATIVE: CASE EVENT DATE: 20220418
